FAERS Safety Report 23519225 (Version 2)
Quarter: 2024Q2

REPORT INFORMATION
  Report Type: Spontaneous
  Country: US (occurrence: US)
  Receive Date: 20240213
  Receipt Date: 20240520
  Transmission Date: 20240716
  Serious: No
  Sender: FDA-Public Use
  Company Number: US-SA-SAC20240205000525

PATIENT
  Age: 2 Year
  Sex: Female

DRUGS (2)
  1. DUPIXENT [Suspect]
     Active Substance: DUPILUMAB
     Indication: Dermatitis atopic
     Dosage: 200 MG, QOW
     Route: 058
  2. EUCRISA [Concomitant]
     Active Substance: CRISABOROLE

REACTIONS (10)
  - Sleep disorder due to a general medical condition [Unknown]
  - Rash macular [Unknown]
  - Skin discolouration [Unknown]
  - Skin fissures [Unknown]
  - Pruritus [Recovering/Resolving]
  - Skin fissures [Recovering/Resolving]
  - Dry skin [Recovering/Resolving]
  - Skin exfoliation [Unknown]
  - Eczema [Unknown]
  - Inappropriate schedule of product administration [Unknown]

NARRATIVE: CASE EVENT DATE: 20240101
